FAERS Safety Report 5808484-9 (Version None)
Quarter: 2008Q3

REPORT INFORMATION
  Report Type: 
  Country: None (occurrence: None)
  Receive Date: 20080710
  Receipt Date: 20080710
  Transmission Date: 20090109
  Serious: Yes (Other)
  Sender: FDA-Public Use
  Company Number: None

PATIENT
  Age: 3 Year
  Sex: Male
  Weight: 15.6 kg

DRUGS (5)
  1. ETOPOSIDE [Suspect]
     Indication: NEUROBLASTOMA
     Dosage: 20.7 MG ONCE IV DRIP  1 DOSE
     Route: 041
     Dates: start: 20080328
  2. MORPHINE [Concomitant]
  3. MESNA [Concomitant]
  4. ONDANSETRON [Concomitant]
  5. RANITIDINE HCL [Concomitant]

REACTIONS (4)
  - ABDOMINAL PAIN [None]
  - BLOOD PRESSURE DIASTOLIC DECREASED [None]
  - COUGH [None]
  - RETCHING [None]
